FAERS Safety Report 8193363-5 (Version None)
Quarter: 2012Q1

REPORT INFORMATION
  Report Type: 
  Country: None (occurrence: None)
  Receive Date: 20120308
  Receipt Date: 20120308
  Transmission Date: 20120608
  Serious: Yes (Life-Threatening, Other)
  Sender: FDA-Public Use
  Company Number: US-JNJFOC-20120207005

PATIENT
  Sex: Female
  Weight: 65.77 kg

DRUGS (1)
  1. NUCYNTA [Suspect]
     Indication: PAIN
     Dosage: AS NEEDED UP TO 4 TIMES A DAY
     Route: 048
     Dates: start: 20120131, end: 20120201

REACTIONS (12)
  - PRODUCT QUALITY ISSUE [None]
  - PALPITATIONS [None]
  - HEART RATE INCREASED [None]
  - SPEECH DISORDER [None]
  - PARANOIA [None]
  - HALLUCINATION [None]
  - PRURITUS [None]
  - VISUAL IMPAIRMENT [None]
  - MENTAL IMPAIRMENT [None]
  - ACTIVITIES OF DAILY LIVING IMPAIRED [None]
  - PRESYNCOPE [None]
  - DYSPNOEA [None]
